FAERS Safety Report 8599380-5 (Version None)
Quarter: 2012Q3

REPORT INFORMATION
  Report Type: 
  Country: None (occurrence: None)
  Receive Date: 20120816
  Receipt Date: 20120809
  Transmission Date: 20120928
  Serious: Yes (Other)
  Sender: FDA-Public Use
  Company Number: US-ASTRAZENECA-2012SE05432

PATIENT
  Age: 55 Year
  Sex: Female
  Weight: 74.8 kg

DRUGS (30)
  1. SYMBICORT [Suspect]
     Indication: CHRONIC OBSTRUCTIVE PULMONARY DISEASE
     Dosage: 160/4.5 MCG , 1 PUFF TWICE DAILY
     Route: 055
  2. SYMBICORT [Suspect]
     Indication: ASTHMA
     Dosage: 160/4.5 MCG , 1 PUFF TWICE DAILY
     Route: 055
  3. SYMBICORT [Suspect]
     Dosage: 160/4.5 MCG , 1 PUFF TWICE DAILY
     Route: 055
  4. SYMBICORT [Suspect]
     Dosage: 160/4.5 MCG , 1 PUFF TWICE DAILY
     Route: 055
  5. SYMBICORT [Suspect]
     Dosage: 320 BID
     Route: 055
     Dates: start: 20110101
  6. SYMBICORT [Suspect]
     Dosage: 320 BID
     Route: 055
     Dates: start: 20110101
  7. SYMBICORT [Suspect]
     Dosage: 160/4.5 MCG , 1 PUFF TWICE DAILY
     Route: 055
  8. SYMBICORT [Suspect]
     Dosage: 160/4.5 MCG , 1 PUFF TWICE DAILY
     Route: 055
  9. SYMBICORT [Suspect]
     Dosage: 160/4.5 MCG , 1 PUFF TWICE DAILY
     Route: 055
  10. SYMBICORT [Suspect]
     Dosage: 160/4.5 MCG , 1 PUFF TWICE DAILY
     Route: 055
  11. SYMBICORT [Suspect]
     Dosage: 160/4.5 MCG , 1 PUFF TWICE DAILY
     Route: 055
  12. SYMBICORT [Suspect]
     Dosage: 160/4.5 MCG , 1 PUFF TWICE DAILY
     Route: 055
  13. SYMBICORT [Suspect]
     Dosage: 160/4.5 MCG , 1 PUFF TWICE DAILY
     Route: 055
  14. SYMBICORT [Suspect]
     Dosage: 160/4.5 MCG , 1 PUFF TWICE DAILY
     Route: 055
  15. SYMBICORT [Suspect]
     Dosage: 160/4.5 MCG , 1 PUFF TWICE DAILY
     Route: 055
  16. SYMBICORT [Suspect]
     Dosage: 160/4.5 MCG , 1 PUFF TWICE DAILY
     Route: 055
  17. SYMBICORT [Suspect]
     Dosage: 160/4.5 MCG , 1 PUFF TWICE DAILY
     Route: 055
  18. SYMBICORT [Suspect]
     Dosage: 160/4.5 MCG , 1 PUFF TWICE DAILY
     Route: 055
  19. SYMBICORT [Suspect]
     Indication: BRONCHITIS
     Dosage: 160/4.5 MCG , 1 PUFF TWICE DAILY
     Route: 055
  20. SYMBICORT [Suspect]
     Dosage: 160/4.5 MCG , 1 PUFF TWICE DAILY
     Route: 055
  21. SYMBICORT [Suspect]
     Dosage: 160/4.5 MCG , 1 PUFF TWICE DAILY
     Route: 055
  22. SYMBICORT [Suspect]
     Dosage: 160/4.5 MCG , 1 PUFF TWICE DAILY
     Route: 055
  23. SYMBICORT [Suspect]
     Dosage: 160/4.5 MCG , 1 PUFF TWICE DAILY
     Route: 055
  24. SYMBICORT [Suspect]
     Dosage: 160/4.5 MCG , 1 PUFF TWICE DAILY
     Route: 055
  25. SYMBICORT [Suspect]
     Dosage: 160/4.5 MCG , 1 PUFF TWICE DAILY
     Route: 055
  26. SYMBICORT [Suspect]
     Dosage: 320 BID
     Route: 055
     Dates: start: 20110101
  27. SYMBICORT [Suspect]
     Dosage: 160/4.5 MCG , 1 PUFF TWICE DAILY
     Route: 055
  28. SYMBICORT [Suspect]
     Dosage: 160/4.5 MCG , 1 PUFF TWICE DAILY
     Route: 055
  29. SYMBICORT [Suspect]
     Dosage: 160/4.5 MCG , 1 PUFF TWICE DAILY
     Route: 055
  30. SYMBICORT [Suspect]
     Dosage: 160/4.5 MCG , 1 PUFF TWICE DAILY
     Route: 055

REACTIONS (7)
  - ABDOMINAL DISTENSION [None]
  - NASOPHARYNGITIS [None]
  - OFF LABEL USE [None]
  - BRONCHITIS [None]
  - CIRCUMSTANCE OR INFORMATION CAPABLE OF LEADING TO MEDICATION ERROR [None]
  - DRUG INEFFECTIVE [None]
  - FALL [None]
